FAERS Safety Report 8545459-3 (Version None)
Quarter: 2012Q3

REPORT INFORMATION
  Report Type: 
  Country: None (occurrence: None)
  Receive Date: 20120727
  Receipt Date: 20111107
  Transmission Date: 20120928
  Serious: No
  Sender: FDA-Public Use
  Company Number: US-ASTRAZENECA-2011SE67579

PATIENT
  Age: 49 Year
  Sex: Female
  Weight: 59 kg

DRUGS (3)
  1. CYMBALTA [Concomitant]
     Indication: MENTAL DISORDER
  2. SEROQUEL XR [Suspect]
     Indication: BIPOLAR DISORDER
     Route: 048
  3. CLONIPINE [Concomitant]
     Indication: NERVOUSNESS

REACTIONS (3)
  - INSOMNIA [None]
  - PANIC ATTACK [None]
  - DRUG DOSE OMISSION [None]
